FAERS Safety Report 7875970-X (Version None)
Quarter: 2011Q4

REPORT INFORMATION
  Report Type: 
  Country: None (occurrence: None)
  Receive Date: 20111031
  Receipt Date: 20111024
  Transmission Date: 20120403
  Serious: Yes (Hospitalization)
  Sender: FDA-Public Use
  Company Number: JP-BAYER-2011-097134

PATIENT
  Age: 84 Year
  Sex: Male
  Weight: 46 kg

DRUGS (8)
  1. GAMOFA [Concomitant]
     Indication: MYOCARDIAL INFARCTION
     Dosage: 20 MG, UNK
     Route: 048
  2. PRAVASTATIN SODIUM [Concomitant]
     Indication: MYOCARDIAL INFARCTION
     Dosage: 10 MG, UNK
     Route: 048
  3. WARFARIN SODIUM [Concomitant]
     Indication: MYOCARDIAL INFARCTION
     Dosage: 1.5 MG, UNK
     Route: 048
  4. AVELOX [Suspect]
     Indication: PNEUMONIA
     Dosage: 400 MG, QD
     Route: 048
     Dates: start: 20110920, end: 20110926
  5. RHYTHMY [Concomitant]
     Indication: MYOCARDIAL INFARCTION
     Dosage: 2 MG, UNK
     Route: 048
  6. CARVEDILOL [Concomitant]
     Indication: MYOCARDIAL INFARCTION
     Dosage: 5 MG, UNK
     Route: 048
     Dates: start: 20000101
  7. ASPIRIN [Concomitant]
     Dosage: 100 MG, UNK
     Route: 048
  8. LOSARTAN POTASSIUM [Concomitant]
     Indication: MYOCARDIAL INFARCTION
     Dosage: 50 MG, UNK
     Route: 048

REACTIONS (1)
  - LIVER DISORDER [None]
